FAERS Safety Report 20222978 (Version 5)
Quarter: 2022Q1

REPORT INFORMATION
  Report Type: Spontaneous
  Country: JP (occurrence: JP)
  Receive Date: 20211223
  Receipt Date: 20220311
  Transmission Date: 20220424
  Serious: Yes (Hospitalization, Other)
  Sender: FDA-Public Use
  Company Number: JP-BEH-2021139737

PATIENT
  Age: 44 Year
  Sex: Male
  Weight: 48.8 kg

DRUGS (18)
  1. HIZENTRA [Suspect]
     Active Substance: HUMAN IMMUNOGLOBULIN G
     Indication: Hypogammaglobulinaemia
     Dosage: 11 GRAM, QW
     Route: 058
     Dates: start: 20211207
  2. HIZENTRA [Suspect]
     Active Substance: HUMAN IMMUNOGLOBULIN G
     Indication: Blood immunoglobulin G decreased
     Dosage: UNK
     Route: 041
  3. HIZENTRA [Suspect]
     Active Substance: HUMAN IMMUNOGLOBULIN G
     Indication: Primary immunodeficiency syndrome
     Dosage: UNK
     Route: 041
     Dates: start: 20211103
  4. HIZENTRA [Suspect]
     Active Substance: HUMAN IMMUNOGLOBULIN G
     Indication: Bruton^s agammaglobulinaemia
     Dosage: UNK
     Route: 041
     Dates: start: 20211113
  5. HIZENTRA [Suspect]
     Active Substance: HUMAN IMMUNOGLOBULIN G
     Dosage: UNK
     Route: 041
     Dates: start: 20211118
  6. HIZENTRA [Suspect]
     Active Substance: HUMAN IMMUNOGLOBULIN G
     Dosage: UNK
     Route: 041
     Dates: start: 20211123
  7. HIZENTRA [Suspect]
     Active Substance: HUMAN IMMUNOGLOBULIN G
     Dosage: UNK
     Route: 041
     Dates: start: 20211129
  8. HIZENTRA [Suspect]
     Active Substance: HUMAN IMMUNOGLOBULIN G
     Dosage: UNK
     Route: 058
     Dates: start: 20211214
  9. CLARITHROMYCIN [Concomitant]
     Active Substance: CLARITHROMYCIN
     Dosage: 200 MILLIGRAM, QD, (AFTER BREAKFAST)
     Route: 048
     Dates: start: 20211207
  10. LEVOCETIRIZINE HYDROCHLORIDE [Concomitant]
     Active Substance: LEVOCETIRIZINE HYDROCHLORIDE
     Dosage: 5 MILLIGRAM, 12 HOURLY, (AFTER BREAKFAST, BEFORE BEDTIME)
     Route: 048
     Dates: start: 20211207
  11. MONTELUKAST [Concomitant]
     Active Substance: MONTELUKAST SODIUM
     Dosage: 10 MILLIGRAM, QD, (BEFORE BEDTIME)
     Route: 048
     Dates: start: 20211207
  12. CARBOCYSTEINE [Concomitant]
     Active Substance: CARBOCYSTEINE
     Dosage: 250 MILLIGRAM, 8 HOURLY, (MORNING, DAYTIME, EVENING)
     Route: 048
     Dates: start: 20211207
  13. AMBROXOL HYDROCHLORIDE [Concomitant]
     Active Substance: AMBROXOL HYDROCHLORIDE
     Dosage: 15 MILLIGRAM, 8 HOURLY, (MORNING, DAYTIME AND EVENING).
     Route: 048
     Dates: start: 20211207
  14. FLUTICASONE FUROATE [Concomitant]
     Active Substance: FLUTICASONE FUROATE
     Dosage: 27.5 MICROGRAM, QD
     Route: 045
     Dates: start: 20211207
  15. MAGNESIUM OXIDE [Concomitant]
     Active Substance: MAGNESIUM OXIDE
     Dosage: 2 TABLETS, QD, (AFTER DINNER)
     Route: 048
     Dates: start: 20211207
  16. SENNOSIDES A AND B [Concomitant]
     Active Substance: SENNOSIDES A AND B
     Dosage: 24 MILLIGRAM, QD, (AFTER DINNER)
     Route: 048
     Dates: start: 20211207
  17. BROMHEXINE [Concomitant]
     Active Substance: BROMHEXINE
     Dosage: 2 MILLILITER, 8 HOURLY, (MORNING, DAYTIME AND EVENING)
     Route: 055
     Dates: start: 20211207
  18. SODIUM CHLORIDE [Concomitant]
     Active Substance: SODIUM CHLORIDE
     Dosage: 5 MILLILITER, 8 HOURS (MORNING, DAYTIME, EVENING)
     Route: 055

REACTIONS (8)
  - Pneumonia [Recovering/Resolving]
  - Haemophilus bacteraemia [Recovering/Resolving]
  - Immunoglobulins decreased [Unknown]
  - Product use issue [Unknown]
  - Treatment noncompliance [Recovering/Resolving]
  - Treatment noncompliance [Recovering/Resolving]
  - Treatment noncompliance [Unknown]
  - No adverse event [Unknown]

NARRATIVE: CASE EVENT DATE: 20211213
